FAERS Safety Report 9448111 (Version 1)
Quarter: 2013Q3

REPORT INFORMATION
  Report Type: Spontaneous
  Country: CA (occurrence: None)
  Receive Date: 20130806
  Receipt Date: 20130806
  Transmission Date: 20140515
  Serious: Yes (Life-Threatening, Hospitalization)
  Sender: FDA-Public Use
  Company Number: 2013AL000463

PATIENT
  Age: 45 Year
  Sex: Female

DRUGS (1)
  1. MACROBID [Suspect]
     Indication: PRODUCT USED FOR UNKNOWN INDICATION

REACTIONS (12)
  - Syncope [None]
  - Nausea [None]
  - Diarrhoea [None]
  - Abdominal pain [None]
  - Dizziness [None]
  - Pruritus [None]
  - Aphonia [None]
  - Swelling face [None]
  - Asthma [None]
  - Scar [None]
  - Contusion [None]
  - Rash generalised [None]
